FAERS Safety Report 17773332 (Version 1)
Quarter: 2020Q2

REPORT INFORMATION
  Report Type: Spontaneous
  Country: CN (occurrence: CN)
  Receive Date: 20200513
  Receipt Date: 20200513
  Transmission Date: 20200714
  Serious: Yes (Hospitalization, Other)
  Sender: FDA-Public Use
  Company Number: CN-MICRO LABS LIMITED-ML2020-01526

PATIENT
  Age: 11 Month
  Sex: Female

DRUGS (5)
  1. SODIUM VALPROATE [Suspect]
     Active Substance: VALPROATE SODIUM
     Indication: STATUS EPILEPTICUS
  2. ACTH [Suspect]
     Active Substance: CORTICOTROPIN
     Indication: STATUS EPILEPTICUS
  3. LEVETIRACETAM. [Suspect]
     Active Substance: LEVETIRACETAM
     Indication: STATUS EPILEPTICUS
  4. TOPIRAMATE. [Suspect]
     Active Substance: TOPIRAMATE
     Indication: STATUS EPILEPTICUS
  5. KETOGENIC DIET [Suspect]
     Active Substance: UNSPECIFIED INGREDIENT
     Indication: STATUS EPILEPTICUS

REACTIONS (1)
  - Drug ineffective [Unknown]
